FAERS Safety Report 18017299 (Version 1)
Quarter: 2020Q3

REPORT INFORMATION
  Report Type: Spontaneous
  Country: FR (occurrence: FR)
  Receive Date: 20200713
  Receipt Date: 20200713
  Transmission Date: 20201103
  Serious: Yes (Hospitalization)
  Sender: FDA-Public Use
  Company Number: FR-ROCHE-2640429

PATIENT
  Age: 76 Year
  Sex: Female
  Weight: 46 kg

DRUGS (1)
  1. MABTHERA [Suspect]
     Active Substance: RITUXIMAB
     Indication: RHEUMATOID ARTHRITIS
     Route: 041
     Dates: start: 201905

REACTIONS (1)
  - Neuroendocrine tumour [Not Recovered/Not Resolved]

NARRATIVE: CASE EVENT DATE: 201909
